FAERS Safety Report 18289229 (Version 1)
Quarter: 2020Q3

REPORT INFORMATION
  Report Type: Spontaneous
  Country: US (occurrence: US)
  Receive Date: 20200921
  Receipt Date: 20200921
  Transmission Date: 20201103
  Serious: Yes (Disabling, Other)
  Sender: FDA-Public Use
  Company Number: US-GUERBET-US-20200128

PATIENT
  Age: 64 Year
  Sex: Female

DRUGS (1)
  1. GADOLINIUM?BASED CONTRAST AGENT [Suspect]
     Active Substance: GADOLINIUM
     Indication: MAGNETIC RESONANCE IMAGING
     Route: 065
     Dates: start: 2007, end: 2007

REACTIONS (2)
  - Wheelchair user [Not Recovered/Not Resolved]
  - Nephrogenic systemic fibrosis [Not Recovered/Not Resolved]

NARRATIVE: CASE EVENT DATE: 2008
